FAERS Safety Report 4286060-X (Version None)
Quarter: 2004Q1

REPORT INFORMATION
  Report Type: 
  Country: None (occurrence: None)
  Receive Date: 20040203
  Receipt Date: 20040121
  Transmission Date: 20041129
  Serious: Yes (Hospitalization, Other)
  Sender: FDA-Public Use
  Company Number: 2003120225

PATIENT
  Age: 87 Year
  Sex: Male

DRUGS (2)
  1. ZOLOFT [Suspect]
     Indication: DEPRESSION
     Dosage: 100 MG DAILY ORAL
     Route: 048
     Dates: start: 20030822
  2. ATENOLOL [Concomitant]

REACTIONS (11)
  - ANXIETY [None]
  - CHEST PAIN [None]
  - DEPRESSION [None]
  - DISEASE RECURRENCE [None]
  - DRUG INEFFECTIVE [None]
  - DUODENAL ULCER [None]
  - DUODENAL ULCER HAEMORRHAGE [None]
  - DYSPHAGIA [None]
  - FAECES DISCOLOURED [None]
  - GASTROINTESTINAL DISORDER [None]
  - HAEMORRHAGE [None]
